FAERS Safety Report 4636548-4 (Version None)
Quarter: 2005Q2

REPORT INFORMATION
  Report Type: 
  Country: None (occurrence: None)
  Receive Date: 20050415
  Receipt Date: 20050407
  Transmission Date: 20051028
  Serious: Yes (Hospitalization)
  Sender: FDA-Public Use
  Company Number: FR-GLAXOSMITHKLINE-B0377797A

PATIENT
  Age: 35 Year
  Sex: Female

DRUGS (3)
  1. ZINNAT [Suspect]
     Indication: PHARYNGOLARYNGEAL PAIN
     Route: 048
     Dates: start: 20041008
  2. MAXILASE [Concomitant]
     Indication: PHARYNGOLARYNGEAL PAIN
     Route: 065
  3. NASAL SPRAY [Concomitant]
     Indication: PHARYNGOLARYNGEAL PAIN
     Route: 055

REACTIONS (10)
  - ANAPHYLACTIC SHOCK [None]
  - CYANOSIS [None]
  - DIARRHOEA [None]
  - DYSPHONIA [None]
  - DYSPNOEA [None]
  - FACE OEDEMA [None]
  - IDIOSYNCRATIC DRUG REACTION [None]
  - PAINFUL RESPIRATION [None]
  - PALMAR ERYTHEMA [None]
  - URTICARIA GENERALISED [None]
